FAERS Safety Report 5626729-5 (Version None)
Quarter: 2008Q1

REPORT INFORMATION
  Report Type: 
  Country: None (occurrence: None)
  Receive Date: 20080214
  Receipt Date: 20080208
  Transmission Date: 20080703
  Serious: Yes (Other)
  Sender: FDA-Public Use
  Company Number: B0507080A

PATIENT
  Age: 59 Year
  Sex: Female

DRUGS (1)
  1. RELENZA [Suspect]
     Indication: INFLUENZA
     Dosage: 10MG PER DAY
     Route: 055
     Dates: start: 20080204, end: 20080204

REACTIONS (4)
  - BLOOD PRESSURE DECREASED [None]
  - MALAISE [None]
  - PALPITATIONS [None]
  - SHOCK [None]
